FAERS Safety Report 6393995-0 (Version None)
Quarter: 2009Q4

REPORT INFORMATION
  Report Type: 
  Country: None (occurrence: None)
  Receive Date: 20091008
  Receipt Date: 20090925
  Transmission Date: 20100525
  Serious: Yes (Other)
  Sender: FDA-Public Use
  Company Number: NL-PFIZER INC-2009237598

PATIENT

DRUGS (12)
  1. REVATIO [Suspect]
     Indication: PULMONARY ARTERIAL HYPERTENSION
     Dosage: 20 MG, 3X/DAY
     Route: 048
     Dates: start: 20090625, end: 20090708
  2. PANTOZOL [Concomitant]
     Dosage: 40 MG, 1X/DAY
  3. THYRAX [Concomitant]
     Dosage: 50 UG, 1X/DAY
  4. SIMVASTATIN [Concomitant]
     Dosage: 40 MG, 1X/DAY
  5. ADALAT [Concomitant]
     Dosage: 30 MG, 1X/DAY
  6. RISPERDAL [Concomitant]
     Dosage: 2 MG, 1X/DAY
  7. LITHIUM CARBONATE [Concomitant]
     Dosage: 1 G, 1X/DAY
  8. OXAZEPAM [Concomitant]
     Dosage: 50 MG, 1X/DAY
  9. SINTROM [Concomitant]
  10. PROMETHAZINE [Concomitant]
     Dosage: 25 MG, 1X/DAY
  11. DEPAKENE [Concomitant]
     Dosage: 900 MG, 1X/DAY
  12. SERTRALINE [Concomitant]
     Dosage: 100 MG, 1X/DAY

REACTIONS (1)
  - SUICIDE ATTEMPT [None]
